FAERS Safety Report 8795538 (Version 2)
Quarter: 2012Q4

REPORT INFORMATION
  Report Type: 
  Country: US (occurrence: US)
  Receive Date: 20120917
  Receipt Date: 20120920
  Transmission Date: 20130627
  Serious: Yes (Hospitalization, Other)
  Sender: FDA-Public Use
  Company Number: US-ROCHE-1125518

PATIENT
  Sex: Female
  Weight: 103.97 kg

DRUGS (5)
  1. PEGASYS [Suspect]
     Indication: HEPATITIS C
     Route: 058
     Dates: end: 20120907
  2. PEGASYS [Suspect]
     Route: 065
     Dates: start: 20120919
  3. RIBAVIRIN [Suspect]
     Indication: HEPATITIS C
     Route: 048
     Dates: end: 20120907
  4. RIBAVIRIN [Suspect]
     Route: 065
     Dates: start: 20120919
  5. INCIVEK [Suspect]
     Indication: HEPATITIS C
     Route: 048
     Dates: end: 20120907

REACTIONS (3)
  - Thrombocytopenia [Unknown]
  - Salmonella sepsis [Recovered/Resolved]
  - Anaemia [Recovered/Resolved]
